FAERS Safety Report 5314196-0 (Version None)
Quarter: 2007Q2

REPORT INFORMATION
  Report Type: 
  Country: None (occurrence: None)
  Receive Date: 20070425
  Receipt Date: 20070417
  Transmission Date: 20071010
  Serious: Yes (Congenital Anomaly, Other)
  Sender: FDA-Public Use
  Company Number: GXKR2007DE03497

PATIENT
  Sex: Female

DRUGS (1)
  1. CITALOPRAM HEXAL (NGX) (CITALOPRAM) FILM-COATED TABLET, 30MG [Suspect]
     Dosage: UNK, UNK, TRANSPLACENTAL
     Route: 064

REACTIONS (3)
  - CONGENITAL ANOMALY [None]
  - DRUG EXPOSURE DURING PREGNANCY [None]
  - FACIAL PARESIS [None]
